FAERS Safety Report 7388883-7 (Version None)
Quarter: 2011Q2

REPORT INFORMATION
  Report Type: 
  Country: None (occurrence: None)
  Receive Date: 20110401
  Receipt Date: 20110322
  Transmission Date: 20111010
  Serious: Yes (Other)
  Sender: FDA-Public Use
  Company Number: US-BAXTER-2010BH003570

PATIENT
  Age: 56 Year
  Sex: Female
  Weight: 68 kg

DRUGS (33)
  1. HEPARIN SODIUM INJECTION [Suspect]
     Route: 058
     Dates: start: 20080421, end: 20080421
  2. PERCOCET [Concomitant]
     Indication: PRODUCT USED FOR UNKNOWN INDICATION
     Route: 065
  3. WARFARIN SODIUM [Concomitant]
     Route: 065
  4. HEPARIN SODIUM INJECTION [Suspect]
     Route: 042
     Dates: start: 20080425, end: 20080425
  5. HEPARIN SODIUM INJECTION [Suspect]
     Route: 042
     Dates: start: 20080425, end: 20080425
  6. WARFARIN SODIUM [Concomitant]
     Route: 065
  7. XANAX [Concomitant]
     Indication: PRODUCT USED FOR UNKNOWN INDICATION
     Route: 065
  8. NOVOLOG [Concomitant]
     Indication: PRODUCT USED FOR UNKNOWN INDICATION
     Route: 065
  9. VICODIN [Concomitant]
     Indication: PAIN
     Route: 065
  10. TORSEMIDE [Concomitant]
     Indication: PRODUCT USED FOR UNKNOWN INDICATION
     Route: 065
  11. HEPARIN SODIUM INJECTION [Suspect]
     Route: 042
     Dates: start: 20080421, end: 20080421
  12. CATAPRES-TTS-1 [Concomitant]
     Indication: PRODUCT USED FOR UNKNOWN INDICATION
     Route: 065
  13. FUROSEMIDE [Concomitant]
     Route: 065
  14. HEPARIN SODIUM INJECTION [Suspect]
     Route: 042
     Dates: start: 20080425, end: 20080425
  15. HEPARIN SODIUM 5,000 UNITS IN DEXTROSE 5% [Suspect]
     Indication: COAGULOPATHY
     Route: 042
     Dates: start: 20080418
  16. LASIX [Concomitant]
     Indication: PRODUCT USED FOR UNKNOWN INDICATION
     Route: 065
  17. INSULIN [Concomitant]
     Indication: PRODUCT USED FOR UNKNOWN INDICATION
     Route: 065
  18. HEPARIN SODIUM INJECTION [Suspect]
     Indication: MITRAL VALVE REPAIR
     Route: 058
     Dates: start: 20080418, end: 20080506
  19. HEPARIN SODIUM INJECTION [Suspect]
     Indication: TRICUSPID VALVE REPAIR
     Route: 058
     Dates: start: 20080418, end: 20080506
  20. FERROUS SULFATE TAB [Concomitant]
     Indication: PRODUCT USED FOR UNKNOWN INDICATION
     Route: 065
  21. WARFARIN SODIUM [Concomitant]
     Indication: PRODUCT USED FOR UNKNOWN INDICATION
     Route: 065
  22. POTASSIUM CHLORIDE [Concomitant]
     Indication: PRODUCT USED FOR UNKNOWN INDICATION
     Route: 065
  23. ALPRAZOLAM [Concomitant]
     Indication: PRODUCT USED FOR UNKNOWN INDICATION
     Route: 065
  24. HEPARIN SODIUM INJECTION [Suspect]
     Route: 042
     Dates: start: 20080421, end: 20080421
  25. HEPARIN SODIUM INJECTION [Suspect]
     Route: 058
     Dates: start: 20080421, end: 20080421
  26. DOCUSATE SODIUM [Concomitant]
     Indication: PRODUCT USED FOR UNKNOWN INDICATION
     Route: 065
  27. FUROSEMIDE [Concomitant]
     Indication: PRODUCT USED FOR UNKNOWN INDICATION
     Route: 065
  28. CARDIZEM [Concomitant]
     Indication: PRODUCT USED FOR UNKNOWN INDICATION
     Route: 065
  29. HEPARIN SODIUM INJECTION [Suspect]
     Route: 042
     Dates: start: 20080425, end: 20080425
  30. METOPROLOL [Concomitant]
     Indication: PRODUCT USED FOR UNKNOWN INDICATION
     Route: 065
  31. AMIODARONE [Concomitant]
     Indication: PRODUCT USED FOR UNKNOWN INDICATION
     Route: 065
  32. LEVOTHYROXINE SODIUM [Concomitant]
     Indication: PRODUCT USED FOR UNKNOWN INDICATION
     Route: 065
  33. OMEPRAZOLE [Concomitant]
     Indication: PRODUCT USED FOR UNKNOWN INDICATION
     Route: 065

REACTIONS (9)
  - PYREXIA [None]
  - HEADACHE [None]
  - HAEMORRHAGE [None]
  - HAEMOTHORAX [None]
  - ECCHYMOSIS [None]
  - HYPOTENSION [None]
  - ANAEMIA [None]
  - WHITE BLOOD CELL COUNT INCREASED [None]
  - HYPERSENSITIVITY [None]
